FAERS Safety Report 8874841 (Version 2)
Quarter: 2013Q3

REPORT INFORMATION
  Report Type: Spontaneous
  Country: US (occurrence: US)
  Receive Date: 20121030
  Receipt Date: 20130916
  Transmission Date: 20140515
  Serious: Yes (Other)
  Sender: FDA-Public Use
  Company Number: US-PFIZER INC-2012269206

PATIENT
  Age: 64 Year
  Sex: Male
  Weight: 98.87 kg

DRUGS (2)
  1. MS CONTIN [Suspect]
     Indication: PAIN
     Dosage: 45 MG, 2X/DAY
     Route: 065
     Dates: start: 20110301
  2. MORPHINE SULFATE [Suspect]
     Indication: BREAKTHROUGH PAIN
     Dosage: 15 MG, UP TO 2 TIMES IN THE PM
     Route: 065
     Dates: start: 20120613

REACTIONS (4)
  - Accidental overdose [Unknown]
  - Confusional state [Unknown]
  - Inadequate analgesia [Recovered/Resolved]
  - Intentional drug misuse [Unknown]
